FAERS Safety Report 6902689-1 (Version None)
Quarter: 2010Q3

REPORT INFORMATION
  Report Type: 
  Country: None (occurrence: None)
  Receive Date: 20100803
  Receipt Date: 20080618
  Transmission Date: 20110219
  Serious: Yes (Other)
  Sender: FDA-Public Use
  Company Number: US-PFIZER INC-2008022590

PATIENT
  Age: 46 Year
  Sex: Female

DRUGS (1)
  1. LYRICA [Suspect]
     Indication: FIBROMYALGIA
     Dates: start: 20070917

REACTIONS (4)
  - DIZZINESS [None]
  - INCREASED APPETITE [None]
  - SOMNOLENCE [None]
  - WEIGHT INCREASED [None]
